FAERS Safety Report 5074863-3 (Version None)
Quarter: 2006Q3

REPORT INFORMATION
  Report Type: 
  Country: None (occurrence: None)
  Receive Date: 20060804
  Receipt Date: 20060701
  Transmission Date: 20061208
  Serious: Yes (Other)
  Sender: FDA-Public Use
  Company Number: US-2006-020377

PATIENT
  Age: 27 Year
  Sex: Male

DRUGS (1)
  1. BETASERON [Suspect]
     Indication: MULTIPLE SCLEROSIS
     Dosage: 2 MIU, EVERY 2D, SUBCUTANEOUS
     Route: 058
     Dates: start: 20060720

REACTIONS (8)
  - ABDOMINAL PAIN [None]
  - EYE ROLLING [None]
  - MIDDLE INSOMNIA [None]
  - MOVEMENT DISORDER [None]
  - OCULAR HYPERAEMIA [None]
  - PAIN [None]
  - PYREXIA [None]
  - TREMOR [None]
